FAERS Safety Report 9867635 (Version 2)
Quarter: 2014Q2

REPORT INFORMATION
  Report Type: Spontaneous
  Country: RU (occurrence: RU)
  Receive Date: 20140204
  Receipt Date: 20140507
  Transmission Date: 20141212
  Serious: Yes (Other)
  Sender: FDA-Public Use
  Company Number: RU-ALEXION PHARMACEUTICALS INC.-A201400120

PATIENT
  Age: 15 Year
  Sex: Female

DRUGS (6)
  1. SOLIRIS 300MG [Suspect]
     Indication: PAROXYSMAL NOCTURNAL HAEMOGLOBINURIA
     Dosage: 600 MG, Q2W
     Route: 042
  2. SOLIRIS 300MG [Suspect]
     Dosage: 300 MG, QW
     Route: 042
  3. FLUDARABINE [Concomitant]
     Indication: PROPHYLAXIS AGAINST TRANSPLANT REJECTION
     Dosage: 150 MG/M2
  4. CYCLOPHOSPHAMIDE [Concomitant]
     Indication: PROPHYLAXIS AGAINST TRANSPLANT REJECTION
     Dosage: 100 MG/M2
  5. TACROLIMUS [Concomitant]
     Indication: PROPHYLAXIS
     Dosage: UNK
  6. METHOTREXATE [Concomitant]
     Indication: PROPHYLAXIS
     Dosage: UNK

REACTIONS (1)
  - Acute graft versus host disease [Recovered/Resolved]
